FAERS Safety Report 6365886-2 (Version None)
Quarter: 2009Q3

REPORT INFORMATION
  Report Type: 
  Country: None (occurrence: None)
  Receive Date: 20090919
  Receipt Date: 20090819
  Transmission Date: 20100115
  Serious: No
  Sender: FDA-Public Use
  Company Number: US-ABBOTT-09P-163-0593250-00

PATIENT
  Sex: Male
  Weight: 104.42 kg

DRUGS (4)
  1. HUMIRA [Suspect]
     Indication: PSORIASIS
     Route: 058
     Dates: start: 20090401, end: 20090801
  2. HUMIRA [Suspect]
     Route: 058
     Dates: start: 20090812
  3. NEXIUM [Concomitant]
     Indication: GASTROOESOPHAGEAL REFLUX DISEASE
     Dosage: UNKNOWN
     Route: 048
  4. AVADART [Concomitant]
     Indication: PROSTATOMEGALY
     Dosage: UNKNOWN
     Route: 048
     Dates: start: 20090101

REACTIONS (1)
  - DRUG INEFFECTIVE [None]
